FAERS Safety Report 7638488-5 (Version None)
Quarter: 2011Q3

REPORT INFORMATION
  Report Type: 
  Country: None (occurrence: None)
  Receive Date: 20110727
  Receipt Date: 20110725
  Transmission Date: 20111222
  Serious: Yes (Hospitalization)
  Sender: FDA-Public Use
  Company Number: PL-AMGEN-POLCT2011034114

PATIENT
  Age: 74 Year
  Sex: Female

DRUGS (8)
  1. ENBREL [Suspect]
     Dosage: 50 MG, QWK
     Route: 058
     Dates: start: 20100601
  2. ALLOPURINOL [Concomitant]
     Dosage: 100 MG, QD
  3. FUROSEMIDUM [Concomitant]
     Dosage: 10 MG, UNK
     Route: 048
  4. SIMVASTATIN [Concomitant]
     Dosage: 20 MG, QD
  5. CLONIDINE [Concomitant]
     Dosage: 0.45 MG, TID
     Route: 048
  6. AMLODIPINA [Concomitant]
     Dosage: 10 MG, QD
     Route: 048
  7. DARBEPOETIN ALFA [Suspect]
     Indication: RENAL FAILURE CHRONIC
     Dosage: 20 A?G, Q2WK
     Dates: start: 20070501
  8. BISOPROLOL FUMARATE [Concomitant]
     Dosage: 5 MG, UNK
     Route: 048

REACTIONS (1)
  - HYPERTENSION [None]
